FAERS Safety Report 9383987 (Version 2)
Quarter: 2013Q4

REPORT INFORMATION
  Report Type: Spontaneous
  Country: TW (occurrence: TW)
  Receive Date: 20130705
  Receipt Date: 20131215
  Transmission Date: 20140711
  Serious: Yes (Other)
  Sender: FDA-Public Use
  Company Number: TW-AMGEN-TWNSP2013046997

PATIENT
  Age: 36 Year
  Sex: Female
  Weight: 43 kg

DRUGS (4)
  1. ARANESP [Suspect]
     Indication: NEPHROGENIC ANAEMIA
     Dosage: 20 MG, 1X/WEEK
     Route: 058
     Dates: start: 20121101, end: 20130611
  2. NORVASC [Concomitant]
     Dosage: 5 MG, QD
     Route: 048
     Dates: start: 20120105
  3. DIOVAN [Concomitant]
     Dosage: 160 MG, QD
     Route: 048
     Dates: start: 20130412
  4. FERRUM HAUSMANN                    /00023505/ [Concomitant]
     Indication: ANAEMIA
     Dosage: 200 MG, QD, (AC 1H)
     Route: 048
     Dates: start: 20111006, end: 20130607

REACTIONS (1)
  - Menorrhagia [Unknown]
